FAERS Safety Report 6302279-8 (Version None)
Quarter: 2009Q3

REPORT INFORMATION
  Report Type: 
  Country: None (occurrence: None)
  Receive Date: 20090810
  Receipt Date: 20090730
  Transmission Date: 20100115
  Serious: Yes (Other)
  Sender: FDA-Public Use
  Company Number: US-PFIZER INC-2009249396

PATIENT
  Weight: 129 kg

DRUGS (6)
  1. CELEBREX [Suspect]
     Indication: ARTHRITIS
     Dosage: UNK
  2. LEVOXYL [Concomitant]
  3. METOPROLOL [Concomitant]
     Dosage: UNK
  4. VERAPAMIL [Concomitant]
  5. QUINAPRIL [Concomitant]
  6. LYRICA [Concomitant]

REACTIONS (1)
  - LUNG NEOPLASM MALIGNANT [None]
